FAERS Safety Report 4906009-3 (Version None)
Quarter: 2006Q1

REPORT INFORMATION
  Report Type: 
  Country: None (occurrence: None)
  Receive Date: 20060206
  Receipt Date: 20060125
  Transmission Date: 20060701
  Serious: Yes (Other)
  Sender: FDA-Public Use
  Company Number: 2006012439

PATIENT
  Age: 62 Year
  Sex: Female
  Weight: 63.05 kg

DRUGS (1)
  1. NASALCROM [Suspect]
     Indication: HYPERSENSITIVITY
     Dosage: ONE SPRAY EACH NOSTRIL 3-4 TIMES A DAY, NASAL
     Route: 045
     Dates: start: 20060120, end: 20060123

REACTIONS (2)
  - PRURITUS [None]
  - URTICARIA GENERALISED [None]
